FAERS Safety Report 8416131-5 (Version None)
Quarter: 2012Q2

REPORT INFORMATION
  Report Type: 
  Country: None (occurrence: None)
  Receive Date: 20120606
  Receipt Date: 20120604
  Transmission Date: 20120825
  Serious: Yes (Hospitalization)
  Sender: FDA-Public Use
  Company Number: JP-BAYER-2012-033719

PATIENT
  Age: 14 Year
  Sex: Female

DRUGS (1)
  1. YAZ [Suspect]
     Indication: DYSMENORRHOEA
     Dosage: 1 DF, QD
     Route: 048
     Dates: start: 20110601

REACTIONS (5)
  - ABDOMINAL PAIN UPPER [None]
  - INFLAMMATORY MARKER INCREASED [None]
  - PYREXIA [None]
  - PANCREATITIS ACUTE [None]
  - HEPATIC FUNCTION ABNORMAL [None]
